FAERS Safety Report 15075119 (Version 1)
Quarter: 2018Q2

REPORT INFORMATION
  Report Type: Spontaneous
  Country: US (occurrence: US)
  Receive Date: 20180627
  Receipt Date: 20180627
  Transmission Date: 20180711
  Serious: Yes (Other)
  Sender: FDA-Public Use
  Company Number: US-SAOL THERAPEUTICS-2017SAO03478

PATIENT
  Age: 18 Year
  Sex: Male
  Weight: 69.3 kg

DRUGS (6)
  1. LIORESAL [Suspect]
     Active Substance: BACLOFEN
     Indication: MUSCLE SPASTICITY
     Dosage: 481.4 ?G, \DAY
     Route: 037
     Dates: end: 20171211
  2. LIORESAL [Suspect]
     Active Substance: BACLOFEN
     Dosage: 12.4 ?G, \DAY
     Route: 037
     Dates: start: 20171211, end: 20171211
  3. LIORESAL [Suspect]
     Active Substance: BACLOFEN
     Dosage: 300 ?G, \DAY
     Route: 037
     Dates: start: 20171211
  4. LIORESAL [Suspect]
     Active Substance: BACLOFEN
     Dosage: 481 ?G, \DAY
     Route: 037
  5. LIORESAL [Suspect]
     Active Substance: BACLOFEN
     Dosage: 701.0 ?G, \DAY
     Route: 037
     Dates: start: 20171211
  6. LIORESAL [Suspect]
     Active Substance: BACLOFEN
     Dosage: 700  ?G, \DAY
     Route: 037
     Dates: start: 20171211

REACTIONS (2)
  - Device battery issue [Recovered/Resolved]
  - Therapy non-responder [Recovered/Resolved]

NARRATIVE: CASE EVENT DATE: 20171130
